FAERS Safety Report 6091787-3 (Version None)
Quarter: 2009Q1

REPORT INFORMATION
  Report Type: 
  Country: None (occurrence: None)
  Receive Date: 20090225
  Receipt Date: 20080616
  Transmission Date: 20090719
  Serious: No
  Sender: FDA-Public Use
  Company Number: A0734004A

PATIENT
  Sex: Female

DRUGS (1)
  1. VALTREX [Suspect]
     Dosage: 1G PER DAY
     Route: 048
     Dates: start: 20080601

REACTIONS (1)
  - DRUG INEFFECTIVE [None]
